FAERS Safety Report 13558400 (Version 1)
Quarter: 2017Q2

REPORT INFORMATION
  Report Type: Spontaneous
  Country: CA (occurrence: CA)
  Receive Date: 20170517
  Receipt Date: 20170517
  Transmission Date: 20170830
  Serious: Yes (Other)
  Sender: FDA-Public Use
  Company Number: CA-TEVA-770184ACC

PATIENT
  Age: 25 Year
  Sex: Male

DRUGS (3)
  1. SALBUTAMOL HFA [Concomitant]
     Active Substance: ALBUTEROL
  2. CLARITHROMYCIN. [Suspect]
     Active Substance: CLARITHROMYCIN
     Indication: BRONCHITIS
     Dosage: 500 MILLIGRAM DAILY;
  3. PREDNISONE. [Concomitant]
     Active Substance: PREDNISONE

REACTIONS (2)
  - Rectal haemorrhage [Unknown]
  - Constipation [Unknown]
